FAERS Safety Report 9109251 (Version 1)
Quarter: 2013Q1

REPORT INFORMATION
  Report Type: Report from Study
  Country: TW (occurrence: TW)
  Receive Date: 20130222
  Receipt Date: 20130222
  Transmission Date: 20140127
  Serious: Yes (Hospitalization, Other)
  Sender: FDA-Public Use
  Company Number: PHHY2012TW120184

PATIENT
  Age: 84 Year
  Sex: Female
  Weight: 45 kg

DRUGS (8)
  1. AMN107 [Suspect]
     Dosage: 400 MG, DAILY
     Dates: start: 20110913
  2. FUROSEMIDE [Concomitant]
  3. SOLU CORTEF [Concomitant]
  4. NITROSTAT [Concomitant]
     Dosage: UNK
     Dates: start: 20130219
  5. ROSUVASTATIN [Concomitant]
  6. NORVASC [Concomitant]
  7. VALSARTAN [Concomitant]
  8. BOKEY [Concomitant]

REACTIONS (8)
  - Cholelithiasis [Recovering/Resolving]
  - Hepatitis acute [Unknown]
  - Aspartate aminotransferase increased [Unknown]
  - Alanine aminotransferase increased [Unknown]
  - Blood alkaline phosphatase increased [Unknown]
  - Abdominal pain upper [Unknown]
  - Pyrexia [Unknown]
  - Gastritis [Unknown]
